FAERS Safety Report 6656769-9 (Version None)
Quarter: 2010Q1

REPORT INFORMATION
  Report Type: 
  Country: None (occurrence: None)
  Receive Date: 20100329
  Receipt Date: 20080225
  Transmission Date: 20100710
  Serious: Yes (Hospitalization, Other)
  Sender: FDA-Public Use
  Company Number: PHHY2008DE34239

PATIENT
  Sex: Male

DRUGS (61)
  1. PANTOPRAZOLE SODIUM [Suspect]
     Dosage: 40 MG/DAY
     Route: 048
     Dates: start: 20021102
  2. PANTOPRAZOLE SODIUM [Suspect]
     Dosage: UNK
     Dates: start: 20021128, end: 20021214
  3. TEGRETOL [Suspect]
     Dosage: 3 DF/DAYUNK
     Route: 048
  4. DECORTIN [Suspect]
     Dosage: 25 MG/DAY
     Route: 048
     Dates: start: 20021202
  5. DECORTIN [Suspect]
     Dosage: 75 MG/DAY
  6. DECORTIN [Suspect]
     Dosage: 90 MG/DAY
  7. DECORTIN [Suspect]
     Dosage: 70 MG/DAY
     Route: 048
     Dates: start: 20021214
  8. PREDNISOLONE [Suspect]
     Dosage: 200 MG/DAY
     Route: 042
     Dates: start: 20021217
  9. PREDNISOLONE [Suspect]
     Dosage: 150 MG/DAY
     Route: 042
     Dates: end: 20021220
  10. LORAZEPAM [Suspect]
     Dosage: UNK
     Route: 048
     Dates: start: 20021129, end: 20021214
  11. SCOPOLAMINE [Suspect]
     Dosage: UNK
     Dates: start: 20021215, end: 20021217
  12. FENISTIL [Suspect]
     Indication: PRURITUS
     Dosage: 2 DF/DAY
     Route: 048
     Dates: start: 20021127
  13. FENISTIL [Suspect]
     Dosage: 3 DF/DAY
     Route: 048
     Dates: end: 20021214
  14. ACETYLSALICYLIC ACID [Suspect]
     Dosage: 100 MG/DAY
     Route: 048
     Dates: start: 19980101
  15. ACETYLSALICYLIC ACID [Suspect]
     Dosage: 100 MG/DAY
     Route: 048
     Dates: start: 20021128, end: 20021214
  16. ACETYLSALICYLIC ACID [Suspect]
     Dosage: UNK
     Dates: start: 20021224
  17. ALLOPURINOL [Suspect]
     Dosage: 100 MG/DAY
     Route: 048
     Dates: start: 20021101
  18. ALLOPURINOL [Suspect]
     Dosage: UNK
     Route: 048
     Dates: start: 20021225
  19. MORPHINE [Suspect]
     Dosage: 3 DF/DAY
     Route: 042
     Dates: start: 20021215, end: 20021220
  20. CEFUROXIME [Suspect]
     Dosage: UNK
     Route: 042
     Dates: start: 20021215, end: 20021221
  21. DEXAMETHASONE [Suspect]
     Dosage: 3 DF/DAY
     Route: 048
     Dates: start: 20021111
  22. DEXAMETHASONE [Suspect]
     Dosage: 8 MG/DAY
     Route: 048
     Dates: end: 20021202
  23. GLYCEROL 2.6% [Suspect]
     Dosage: 3/DAY
     Route: 048
     Dates: start: 20021113
  24. GLYCEROL 2.6% [Suspect]
     Dosage: 10 ML/DAY
     Route: 048
     Dates: end: 20021202
  25. SORTIS [Suspect]
     Dosage: 40 MG/DAY
     Route: 048
     Dates: start: 20021101
  26. SORTIS [Suspect]
     Dosage: UNK
     Route: 048
     Dates: end: 20021203
  27. NORVASK [Suspect]
     Dosage: 5 MG/DAY
     Route: 061
     Dates: start: 20021128, end: 20021130
  28. NORVASK [Suspect]
     Dosage: UNK
     Route: 061
     Dates: start: 20021204, end: 20021214
  29. PHENHYDAN [Suspect]
     Dosage: 3 DF/DAY
     Route: 048
     Dates: start: 20021113
  30. PHENHYDAN [Suspect]
     Dosage: UNK
     Route: 048
     Dates: start: 20021128, end: 20021214
  31. ZICKAUHER [Suspect]
     Dosage: UNK
     Dates: start: 20021128, end: 20021230
  32. ZICKAUHER [Suspect]
     Dosage: UNK
     Dates: start: 20021204, end: 20021224
  33. PLAVIX [Suspect]
     Dosage: 75 MG/DAY
     Route: 048
     Dates: start: 20021029
  34. PLAVIX [Suspect]
     Dosage: UNK
     Route: 048
     Dates: start: 20021128, end: 20021214
  35. AMPHOTERICIN B [Suspect]
     Dosage: 2 DF/DAY
  36. AMPHOTERICIN B [Suspect]
     Dosage: 3 DF/DAY
     Dates: start: 20021129, end: 20021205
  37. TEPILTA [Suspect]
     Dosage: 2 DF/DAY
     Route: 048
     Dates: start: 20021129
  38. TEPILTA [Suspect]
     Dosage: 3 DF/DAY
     Route: 048
     Dates: end: 20021214
  39. CEFPODOXIME PROXETIL [Suspect]
     Dosage: 2 /DAY
     Route: 048
     Dates: start: 20021202, end: 20021214
  40. VITADRAL [Suspect]
     Dosage: 4 /DAY, 6DF
     Route: 048
     Dates: start: 20021202
  41. VITADRAL [Suspect]
     Dosage: 4 /DAY, 4DF
     Route: 048
     Dates: end: 20021214
  42. XYLOCAINE [Suspect]
     Dosage: UNK
     Route: 002
     Dates: start: 20021205, end: 20021224
  43. FORTIMEL [Suspect]
     Dosage: UNK
     Route: 048
     Dates: start: 20021206, end: 20021214
  44. DIFLUCAN [Suspect]
     Dosage: UNK
     Route: 048
     Dates: start: 20021206, end: 20021214
  45. DIFLUCAN [Suspect]
     Dosage: UNK
     Dates: start: 20021215, end: 20021220
  46. BERIGLOBIN [Suspect]
     Dosage: UNK
     Route: 030
     Dates: start: 20021212, end: 20021214
  47. THOMAEJONIN [Suspect]
     Dosage: 2 DF/DAY
     Route: 042
     Dates: start: 20021212, end: 20021218
  48. BUPRENORPHINE HCL [Suspect]
     Dosage: 2 DF/DAY
     Route: 048
     Dates: start: 20021213
  49. CLINOMEL [Suspect]
     Dosage: UNK
     Route: 042
     Dates: start: 20021213, end: 20021222
  50. BEPANTOL [Suspect]
     Dosage: UNK
     Route: 061
     Dates: start: 20021214, end: 20021224
  51. FORTECORTIN [Suspect]
     Dosage: 2 /DAY
     Route: 042
     Dates: start: 20021215, end: 20021218
  52. JONOSTERIL [Suspect]
     Dosage: UNK
     Route: 042
     Dates: start: 20021215, end: 20021216
  53. FAUSTAN [Suspect]
     Dosage: UNK
     Route: 042
     Dates: start: 20021215, end: 20021218
  54. LASIX [Suspect]
     Dosage: UNK
     Route: 042
     Dates: start: 20021215, end: 20021219
  55. LASIX [Suspect]
     Dosage: UNK
     Route: 048
     Dates: start: 20021220, end: 20021222
  56. MANNITOL [Suspect]
     Dosage: UNK
     Route: 042
     Dates: start: 20021215, end: 20021219
  57. RANITIC [Suspect]
     Dosage: UNK
     Route: 042
     Dates: start: 20021215, end: 20021219
  58. LACTULOSE [Suspect]
     Dosage: UNK
     Route: 042
     Dates: start: 20021218, end: 20021226
  59. FRAXIPARIN [Suspect]
     Dosage: UNK
     Route: 058
     Dates: start: 20021216, end: 20021222
  60. LINOLA-FETT [Suspect]
     Dosage: UNK
     Route: 061
     Dates: start: 20021220, end: 20021226
  61. MST [Suspect]
     Dosage: 3 DF/DAY
     Route: 048
     Dates: start: 20021221, end: 20021226

REACTIONS (8)
  - BLISTER [None]
  - BRONCHITIS [None]
  - CONJUNCTIVITIS [None]
  - LIP EROSION [None]
  - RASH [None]
  - SKIN DISORDER [None]
  - STEVENS-JOHNSON SYNDROME [None]
  - TOXIC EPIDERMAL NECROLYSIS [None]
